FAERS Safety Report 10203595 (Version 2)
Quarter: 2014Q2

REPORT INFORMATION
  Report Type: Spontaneous
  Country: US (occurrence: US)
  Receive Date: 20140529
  Receipt Date: 20140529
  Transmission Date: 20141212
  Serious: No
  Sender: FDA-Public Use
  Company Number: US-PFIZER INC-2013267852

PATIENT
  Age: 2 Year
  Sex: Male
  Weight: 15.9 kg

DRUGS (4)
  1. GENOTROPIN [Suspect]
     Indication: GROWTH HORMONE DEFICIENCY
     Dosage: 0.9 MG, DAILY
     Route: 058
     Dates: start: 201104
  2. GENOTROPIN [Suspect]
     Dosage: 0.8 MG, 1X/DAY
     Route: 058
     Dates: start: 201105
  3. ALBUTEROL [Concomitant]
     Dosage: UNK
  4. FLOVENT [Concomitant]
     Dosage: UNK

REACTIONS (2)
  - Anxiety [Unknown]
  - Aggression [Unknown]
